FAERS Safety Report 7885432-1 (Version None)
Quarter: 2011Q4

REPORT INFORMATION
  Report Type: 
  Country: None (occurrence: None)
  Receive Date: 20111102
  Receipt Date: 20111020
  Transmission Date: 20120403
  Serious: Yes (Hospitalization)
  Sender: FDA-Public Use
  Company Number: JP-GLAXOSMITHKLINE-B0734381A

PATIENT
  Sex: Female

DRUGS (12)
  1. BERAPROST SODIUM [Concomitant]
     Dosage: 60MCG PER DAY
     Route: 048
  2. LIPITOR [Concomitant]
     Dosage: 5MG PER DAY
     Route: 048
  3. PLAVIX [Concomitant]
     Dosage: 50MG PER DAY
     Route: 048
  4. LENDORMIN [Concomitant]
     Dosage: .25MG PER DAY
     Route: 048
  5. AMBRISENTAN [Suspect]
     Indication: PULMONARY HYPERTENSION
     Dosage: 2.5MG PER DAY
     Route: 048
     Dates: start: 20110525, end: 20110612
  6. ISOSORBIDE DINITRATE [Concomitant]
     Route: 062
  7. LANSOPRAZOLE [Concomitant]
     Dosage: 15MG PER DAY
     Route: 048
  8. WARFARIN SODIUM [Concomitant]
     Dosage: 2.5MG PER DAY
     Route: 048
  9. DILTIAZEM HCL [Concomitant]
     Dosage: 60MG PER DAY
     Route: 048
  10. BERAPROST SODIUM [Concomitant]
     Route: 048
  11. WARFARIN SODIUM [Concomitant]
     Route: 048
  12. DIOVAN [Concomitant]
     Dosage: 40MG PER DAY
     Route: 048

REACTIONS (3)
  - APHAGIA [None]
  - NAUSEA [None]
  - DEHYDRATION [None]
